FAERS Safety Report 20701893 (Version 1)
Quarter: 2022Q2

REPORT INFORMATION
  Report Type: Spontaneous
  Country: US (occurrence: None)
  Receive Date: 20220412
  Receipt Date: 20220412
  Transmission Date: 20220720
  Serious: Yes (Hospitalization)
  Sender: FDA-Public Use
  Company Number: None

PATIENT
  Age: 76 Year
  Sex: Male

DRUGS (2)
  1. DARZALEX [Suspect]
     Active Substance: DARATUMUMAB
     Indication: Plasma cell myeloma
     Dosage: 15ML  EVERY 4 WEEKS SUBCUTANEOUS??TO ON HOLD ?
     Route: 058
     Dates: start: 20210806
  2. XGEVA [Suspect]
     Active Substance: DENOSUMAB
     Indication: Plasma cell myeloma
     Dosage: 120MG EVERY 4 WEEKS SUBCUTANEOUS??TO ON HOLD?
     Route: 058

REACTIONS (2)
  - Stem cell transplant [None]
  - Therapy interrupted [None]

NARRATIVE: CASE EVENT DATE: 20220407
